FAERS Safety Report 20947017 (Version 1)
Quarter: 2022Q2

REPORT INFORMATION
  Report Type: Spontaneous
  Country: US (occurrence: US)
  Receive Date: 20220610
  Receipt Date: 20220610
  Transmission Date: 20220721
  Serious: Yes (Other)
  Sender: FDA-Public Use
  Company Number: US-BAXTER-2022BAX012183

PATIENT
  Age: 14 Year
  Sex: Female

DRUGS (5)
  1. IFOSFAMIDE [Suspect]
     Active Substance: IFOSFAMIDE
     Indication: Synovial sarcoma
     Dosage: 4.02 G, CYCLICAL ON DAYS 1, 2, AND 3
     Route: 065
  2. MESNA [Suspect]
     Active Substance: MESNA
     Indication: Synovial sarcoma
     Dosage: 1 G, CYCLICAL ON DAYS 1, 2, AND 3
     Route: 065
  3. DOXORUBICIN [Suspect]
     Active Substance: DOXORUBICIN
     Indication: Synovial sarcoma
     Dosage: 40 MG ADMINISTERED ON DAYS 1 AND 2
     Route: 065
  4. VINCRISTINE [Concomitant]
     Active Substance: VINCRISTINE
     Indication: Synovial sarcoma
     Dosage: 2 MG GIVEN ON DAY 1
     Route: 065
  5. GRANULOCYTE COLONY-STIMULATING FACTOR NOS [Concomitant]
     Active Substance: GRANULOCYTE COLONY-STIMULATING FACTOR NOS
     Indication: Synovial sarcoma
     Dosage: 200 MG FOR 7 DAYS
     Route: 065

REACTIONS (1)
  - Chronic kidney disease [Unknown]
